FAERS Safety Report 18185573 (Version 1)
Quarter: 2020Q3

REPORT INFORMATION
  Report Type: Report from Study
  Country: None (occurrence: US)
  Receive Date: 20200824
  Receipt Date: 20200824
  Transmission Date: 20201103
  Serious: Yes (Other)
  Sender: FDA-Public Use
  Company Number: US-BIOVITRUM-2020US2251

PATIENT
  Age: 52 Year
  Sex: Female

DRUGS (7)
  1. KINERET [Suspect]
     Active Substance: ANAKINRA
     Indication: STILL^S DISEASE
     Route: 058
     Dates: start: 20200423
  2. FOSAMAX [Concomitant]
     Active Substance: ALENDRONATE SODIUM
  3. FOLIC ACID. [Concomitant]
     Active Substance: FOLIC ACID
  4. METOTHREXATE [Concomitant]
  5. PREDNISONE. [Concomitant]
     Active Substance: PREDNISONE
  6. CALTRATE [Concomitant]
     Active Substance: CALCIUM CARBONATE
  7. PANTOPRAZOLE [Concomitant]
     Active Substance: PANTOPRAZOLE

REACTIONS (18)
  - Pruritus [Unknown]
  - Off label use [Not Recovered/Not Resolved]
  - Product dose omission issue [Unknown]
  - Still^s disease [Unknown]
  - Condition aggravated [Unknown]
  - Pain [Unknown]
  - Facial pain [Unknown]
  - Pain in extremity [Unknown]
  - Hyperhidrosis [Unknown]
  - Paraesthesia [Unknown]
  - Rash [Unknown]
  - Feeling hot [Unknown]
  - Injection site pain [Recovered/Resolved]
  - Flushing [Unknown]
  - Oropharyngeal pain [Unknown]
  - Insomnia [Unknown]
  - Night sweats [Unknown]
  - Neck pain [Unknown]

NARRATIVE: CASE EVENT DATE: 20200423
